FAERS Safety Report 5341527-8 (Version None)
Quarter: 2007Q2

REPORT INFORMATION
  Report Type: 
  Country: None (occurrence: None)
  Receive Date: 20070529
  Receipt Date: 20070529
  Transmission Date: 20071010
  Serious: Yes (Hospitalization)
  Sender: FDA-Public Use
  Company Number: None

PATIENT
  Age: 61 Year
  Sex: Male
  Weight: 106 kg

DRUGS (7)
  1. SUTENT [Suspect]
     Indication: METASTATIC RENAL CELL CARCINOMA
     Dosage: 50 MG DAILY PO
     Route: 048
     Dates: start: 20070415, end: 20070429
  2. NEURONTIN [Concomitant]
  3. ULTRAM ER [Concomitant]
  4. CELEXA [Concomitant]
  5. AVODART [Concomitant]
  6. SINGULAIR [Concomitant]
  7. COMPAZINE [Concomitant]

REACTIONS (5)
  - HEPATIC ENZYME INCREASED [None]
  - HEPATIC FUNCTION ABNORMAL [None]
  - MALAISE [None]
  - NAUSEA [None]
  - NIGHT SWEATS [None]
